FAERS Safety Report 26202685 (Version 1)
Quarter: 2025Q4

REPORT INFORMATION
  Report Type: Spontaneous
  Country: CN (occurrence: CN)
  Receive Date: 20251226
  Receipt Date: 20251226
  Transmission Date: 20260117
  Serious: Yes (Other)
  Sender: ROCHE
  Company Number: CN-BoehringerIngelheim-2025-BI-116359

PATIENT
  Age: 82 Year
  Sex: Female
  Weight: 56.000 kg

DRUGS (1)
  1. ALTEPLASE [Suspect]
     Active Substance: ALTEPLASE
     Indication: Cerebral infarction
     Route: 042
     Dates: start: 20251209, end: 20251209

REACTIONS (4)
  - Haemorrhage intracranial [Unknown]
  - Subdural haematoma [Recovering/Resolving]
  - Soft tissue swelling [Unknown]
  - Subcutaneous haematoma [Unknown]

NARRATIVE: CASE EVENT DATE: 20251209
